FAERS Safety Report 21795422 (Version 2)
Quarter: 2023Q1

REPORT INFORMATION
  Report Type: Spontaneous
  Country: US (occurrence: US)
  Receive Date: 20221229
  Receipt Date: 20230109
  Transmission Date: 20230418
  Serious: Yes (Other)
  Sender: FDA-Public Use
  Company Number: US-ABBVIE-4252296

PATIENT
  Age: 50 Year
  Sex: Female
  Weight: 168 kg

DRUGS (4)
  1. ORIAHNN [Suspect]
     Active Substance: ELAGOLIX SODIUM\ESTRADIOL\NORETHINDRONE
     Indication: Uterine leiomyoma
     Route: 048
     Dates: start: 202011
  2. METFORMIN [Concomitant]
     Active Substance: METFORMIN HYDROCHLORIDE
     Indication: Type 2 diabetes mellitus
  3. ORIAHNN [Suspect]
     Active Substance: ELAGOLIX SODIUM\ESTRADIOL\NORETHINDRONE
     Indication: Uterine leiomyoma
     Route: 048
     Dates: start: 202011
  4. LEVOTHYROXINE [Concomitant]
     Active Substance: LEVOTHYROXINE
     Indication: Thyroid disorder

REACTIONS (5)
  - Gallbladder operation [Unknown]
  - Eructation [Recovering/Resolving]
  - Venous operation [Unknown]
  - Food intolerance [Recovering/Resolving]
  - Gallbladder hypofunction [Recovering/Resolving]

NARRATIVE: CASE EVENT DATE: 20220401
